FAERS Safety Report 16500209 (Version 1)
Quarter: 2019Q2

REPORT INFORMATION
  Report Type: Spontaneous
  Country: US (occurrence: US)
  Receive Date: 20190520
  Receipt Date: 20190520
  Transmission Date: 20190711
  Serious: Yes (Hospitalization)
  Sender: FDA-Public Use
  Company Number: None

PATIENT
  Age: 71 Year
  Sex: Female

DRUGS (14)
  1. PROLIA [Concomitant]
     Active Substance: DENOSUMAB
  2. LASIX [Concomitant]
     Active Substance: FUROSEMIDE
  3. VIT D3 DROPS LIQ [Concomitant]
  4. PRANDIN [Concomitant]
     Active Substance: REPAGLINIDE
  5. PREDNISONE. [Concomitant]
     Active Substance: PREDNISONE
  6. SINGULAIR [Concomitant]
     Active Substance: MONTELUKAST SODIUM
  7. ESBRIET [Suspect]
     Active Substance: PIRFENIDONE
     Indication: IDIOPATHIC PULMONARY FIBROSIS
     Route: 048
     Dates: start: 20190227
  8. XYZAL [Concomitant]
     Active Substance: LEVOCETIRIZINE DIHYDROCHLORIDE
  9. DIGOXIN. [Concomitant]
     Active Substance: DIGOXIN
  10. METOPROL SUC [Concomitant]
  11. ASPIRIN LOW TAB [Concomitant]
  12. GABAPENTIN. [Concomitant]
     Active Substance: GABAPENTIN
  13. POT CL MIRCO TAB [Concomitant]
  14. LETROZOLE. [Concomitant]
     Active Substance: LETROZOLE

REACTIONS (1)
  - Dyspnoea [None]

NARRATIVE: CASE EVENT DATE: 201904
